FAERS Safety Report 24045053 (Version 1)
Quarter: 2024Q3

REPORT INFORMATION
  Report Type: Other
  Country: US (occurrence: US)
  Receive Date: 20240703
  Receipt Date: 20240703
  Transmission Date: 20241017
  Serious: Yes (Death, Other)
  Sender: SIGA TECHNOLOGIES
  Company Number: US-SIGA Technologies, Inc.-2158777

PATIENT
  Age: 33 Year
  Sex: Male

DRUGS (4)
  1. TPOXX [Suspect]
     Active Substance: TECOVIRIMAT
     Indication: Monkeypox
     Route: 048
  2. TPOXX [Suspect]
     Active Substance: TECOVIRIMAT
     Route: 042
  3. UNSPECIFIED INGREDIENT [Suspect]
     Active Substance: UNSPECIFIED INGREDIENT
  4. UNSPECIFIED INGREDIENT [Suspect]
     Active Substance: UNSPECIFIED INGREDIENT
     Route: 042

REACTIONS (3)
  - Lower gastrointestinal haemorrhage [Fatal]
  - Shock haemorrhagic [Fatal]
  - Acute kidney injury [Fatal]
